FAERS Safety Report 5268519-1 (Version None)
Quarter: 2007Q1

REPORT INFORMATION
  Report Type: 
  Country: None (occurrence: None)
  Receive Date: 20061213
  Receipt Date: 20040824
  Transmission Date: 20070707
  Serious: Yes (Other)
  Sender: FDA-Public Use
  Company Number: 2004UW18024

PATIENT
  Sex: Female

DRUGS (1)
  1. IRESSA [Suspect]
     Dosage: 250 MG QD PO
     Route: 048
     Dates: start: 20040601

REACTIONS (2)
  - ONYCHOMADESIS [None]
  - PALMAR-PLANTAR ERYTHRODYSAESTHESIA SYNDROME [None]
